FAERS Safety Report 10044987 (Version 2)
Quarter: 2014Q2

REPORT INFORMATION
  Report Type: Spontaneous
  Country: US (occurrence: US)
  Receive Date: 20140328
  Receipt Date: 20140414
  Transmission Date: 20141212
  Serious: Yes (Other)
  Sender: FDA-Public Use
  Company Number: US-009507513-1403USA012312

PATIENT
  Age: 27 Year
  Sex: Female

DRUGS (1)
  1. JANUVIA [Suspect]
     Dosage: 700 MG
     Route: 048

REACTIONS (3)
  - Suicide attempt [Unknown]
  - Intentional overdose [Unknown]
  - Abdominal discomfort [Recovered/Resolved]
